FAERS Safety Report 9315170 (Version 1)
Quarter: 2013Q2

REPORT INFORMATION
  Report Type: Spontaneous
  Country: US (occurrence: US)
  Receive Date: 20130529
  Receipt Date: 20130529
  Transmission Date: 20140414
  Serious: No
  Sender: FDA-Public Use
  Company Number: US-PFIZER INC-2013160354

PATIENT
  Age: 87 Year
  Sex: Male
  Weight: 74 kg

DRUGS (5)
  1. LATANOPROST [Suspect]
     Indication: GLAUCOMA
     Dosage: UNK
     Route: 047
     Dates: end: 201305
  2. LATANOPROST [Suspect]
     Dosage: UNK
     Route: 047
     Dates: start: 20130523
  3. BICALUTAMIDE [Suspect]
     Indication: PROSTATE CANCER
     Dosage: 50 MG, 1X/DAY
     Dates: end: 201305
  4. BICALUTAMIDE [Suspect]
     Dosage: UNK
     Dates: start: 20130523
  5. TRELSTAR [Concomitant]
     Indication: PROSTATE CANCER
     Dosage: UNK, MONTHLY

REACTIONS (1)
  - Insomnia [Unknown]
